FAERS Safety Report 21867385 (Version 1)
Quarter: 2023Q1

REPORT INFORMATION
  Report Type: Spontaneous
  Country: US (occurrence: US)
  Receive Date: 20230116
  Receipt Date: 20230116
  Transmission Date: 20230418
  Serious: No
  Sender: FDA-Public Use
  Company Number: US-BRISTOL-MYERS SQUIBB COMPANY-2023-006836

PATIENT

DRUGS (1)
  1. CAMZYOS [Suspect]
     Active Substance: MAVACAMTEN
     Indication: Multiple sclerosis
     Dosage: DOSE : 2.5 MG;     FREQ : DAILY FOR 3 DAYS
     Route: 048

REACTIONS (2)
  - Headache [Unknown]
  - Off label use [Unknown]
